FAERS Safety Report 19120493 (Version 1)
Quarter: 2021Q2

REPORT INFORMATION
  Report Type: Spontaneous
  Country: US (occurrence: US)
  Receive Date: 20210411
  Receipt Date: 20210411
  Transmission Date: 20210717
  Serious: Yes (Other)
  Sender: FDA-Public Use
  Company Number: None

PATIENT
  Age: 41 Year
  Sex: Female
  Weight: 128.5 kg

DRUGS (6)
  1. DEXAMETHASONE. [Concomitant]
     Active Substance: DEXAMETHASONE
     Dates: start: 20210407
  2. REMDESIVIR. [Suspect]
     Active Substance: REMDESIVIR
     Indication: COVID-19
     Route: 041
     Dates: start: 20210408, end: 20210411
  3. METHADONE [Concomitant]
     Active Substance: METHADONE HYDROCHLORIDE
     Dates: start: 20200401
  4. WARFARIN [Concomitant]
     Active Substance: WARFARIN
     Dates: start: 20200401
  5. REMDESIVIR. [Suspect]
     Active Substance: REMDESIVIR
     Indication: RESPIRATORY FAILURE
     Route: 041
     Dates: start: 20210408, end: 20210411
  6. REMDESIVIR. [Suspect]
     Active Substance: REMDESIVIR

REACTIONS (1)
  - Bradycardia [None]

NARRATIVE: CASE EVENT DATE: 20210410
